FAERS Safety Report 9070556 (Version 2)
Quarter: 2014Q3

REPORT INFORMATION
  Report Type: Spontaneous
  Country: US (occurrence: US)
  Receive Date: 20130215
  Receipt Date: 20140909
  Transmission Date: 20150326
  Serious: Yes (Hospitalization)
  Sender: FDA-Public Use
  Company Number: US-BAYER-2013-019798

PATIENT
  Age: 34 Year
  Sex: Female

DRUGS (16)
  1. YASMIN [Suspect]
     Active Substance: DROSPIRENONE\ETHINYL ESTRADIOL
     Dosage: UNK
     Dates: start: 2012
  2. CRESTOR [Concomitant]
     Active Substance: ROSUVASTATIN CALCIUM
  3. CELEXA [Concomitant]
     Active Substance: CITALOPRAM HYDROBROMIDE
     Dosage: 40 MG, 1 DAILY
     Route: 048
  4. ALTACE [Concomitant]
     Active Substance: RAMIPRIL
     Dosage: 2.5 MG, QD
     Route: 048
  5. ZYRTEC [Concomitant]
     Active Substance: CETIRIZINE HYDROCHLORIDE
     Dosage: 10 MG, ONE DAILY AS NEEDED
     Route: 048
  6. OCELLA [Suspect]
     Active Substance: DROSPIRENONE\ETHINYL ESTRADIOL
     Dosage: UNK
     Dates: start: 2012
  7. WELLBUTRIN SR [Concomitant]
     Active Substance: BUPROPION HYDROCHLORIDE
     Dosage: 300 MG, ONE DAILY
     Route: 048
  8. CITALOPRAM [Concomitant]
     Active Substance: CITALOPRAM HYDROBROMIDE
  9. LANTUS [Concomitant]
     Active Substance: INSULIN GLARGINE
     Dosage: 35 U, UNK
  10. LISINOPRIL. [Concomitant]
     Active Substance: LISINOPRIL
  11. YAZ [Suspect]
     Active Substance: DROSPIRENONE\ETHINYL ESTRADIOL
     Dosage: UNK
     Dates: start: 2012
  12. BUPROPION [Concomitant]
     Active Substance: BUPROPION
  13. ALTACE [Concomitant]
     Active Substance: RAMIPRIL
     Dosage: 5 MG, 1 DAILY
     Route: 048
  14. NOVOLOG [Concomitant]
     Active Substance: INSULIN ASPART
     Dosage: 100 U/ML, VARIES DAY TO DAY
  15. VALIUM [Concomitant]
     Active Substance: DIAZEPAM
     Dosage: 10 MG, 1 DAILY
     Route: 048
  16. WELLBUTRIN XL [Concomitant]
     Active Substance: BUPROPION HYDROCHLORIDE
     Dosage: 150 MG, QD
     Route: 048

REACTIONS (5)
  - Deep vein thrombosis [None]
  - Fear of disease [None]
  - Pulmonary embolism [None]
  - Injury [None]
  - Pain [None]

NARRATIVE: CASE EVENT DATE: 20120817
